FAERS Safety Report 4735729-9 (Version None)
Quarter: 2005Q3

REPORT INFORMATION
  Report Type: 
  Country: None (occurrence: None)
  Receive Date: 20050805
  Receipt Date: 20050728
  Transmission Date: 20060218
  Serious: Yes (Hospitalization)
  Sender: FDA-Public Use
  Company Number: US-SANOFI-SYNTHELABO-F03200500106

PATIENT
  Age: 15 Year
  Sex: Female

DRUGS (11)
  1. ELOXATIN [Suspect]
     Indication: COLORECTAL CANCER METASTATIC
     Dosage: 2/1 CYCLE
     Route: 042
     Dates: start: 20050502, end: 20050502
  2. IRINOTECAN [Suspect]
     Indication: COLORECTAL CANCER METASTATIC
     Dosage: 10/1 CYCLE
     Route: 042
     Dates: start: 20050505, end: 20050505
  3. FLUOROURACIL [Suspect]
     Indication: COLORECTAL CANCER METASTATIC
     Dosage: UNK
     Route: 042
     Dates: start: 20050425
  4. CETUXIMAB [Suspect]
     Indication: COLORECTAL CANCER METASTATIC
     Dosage: UNK
     Route: 042
     Dates: start: 20050425
  5. LEUCOVORIN [Suspect]
     Indication: COLORECTAL CANCER METASTATIC
     Dosage: UNK
     Route: 042
     Dates: start: 20050425
  6. BEVACIZUMAB [Suspect]
     Indication: COLORECTAL CANCER METASTATIC
     Dosage: UNK
     Route: 065
     Dates: start: 20050425
  7. ATIVAN [Concomitant]
     Dosage: UNK
     Route: 065
  8. FENTANYL [Concomitant]
     Dosage: UNK
     Route: 065
  9. IMODIUM [Concomitant]
     Dosage: UNK
     Route: 065
  10. SCOPOLAMINE [Concomitant]
     Dosage: UNK
     Route: 065
  11. ZOFRAN [Concomitant]
     Dosage: UNK
     Route: 065

REACTIONS (6)
  - ABDOMINAL PAIN [None]
  - DIARRHOEA [None]
  - EATING DISORDER [None]
  - LIPASE INCREASED [None]
  - NAUSEA [None]
  - REFUSAL OF TREATMENT BY RELATIVE [None]
